FAERS Safety Report 6390273-0 (Version None)
Quarter: 2009Q4

REPORT INFORMATION
  Report Type: 
  Country: None (occurrence: None)
  Receive Date: 20091006
  Receipt Date: 20091005
  Transmission Date: 20100525
  Serious: Yes (Hospitalization)
  Sender: FDA-Public Use
  Company Number: US-ABBOTT-09P-163-0598552-00

PATIENT
  Age: 68 Year
  Sex: Female
  Weight: 62.652 kg

DRUGS (4)
  1. SYNTHROID [Suspect]
     Indication: HORMONE REPLACEMENT THERAPY
  2. DILANTIN [Suspect]
     Indication: CONVULSION
  3. DILANTIN [Suspect]
     Route: 048
     Dates: start: 19630101
  4. PRIMIDONE [Suspect]
     Indication: CONVULSION
     Route: 048
     Dates: start: 20080101

REACTIONS (5)
  - DRUG INEFFECTIVE [None]
  - DRUG INTERACTION [None]
  - PETIT MAL EPILEPSY [None]
  - TREMOR [None]
  - WEIGHT INCREASED [None]
